FAERS Safety Report 6523965-0 (Version None)
Quarter: 2009Q4

REPORT INFORMATION
  Report Type: 
  Country: None (occurrence: None)
  Receive Date: 20091231
  Receipt Date: 20091223
  Transmission Date: 20100525
  Serious: Yes (Hospitalization)
  Sender: FDA-Public Use
  Company Number: DE-ELI_LILLY_AND_COMPANY-DE200911000378

PATIENT
  Sex: Male
  Weight: 82 kg

DRUGS (3)
  1. GEMCITABINE HCL [Suspect]
     Indication: NON-SMALL CELL LUNG CANCER
     Dosage: 1200 MG/M2, UNKNOWN
     Route: 065
     Dates: start: 20090813
  2. CETUXIMAB [Suspect]
     Indication: NON-SMALL CELL LUNG CANCER
     Dosage: 250 MG/M2, UNKNOWN
     Route: 065
     Dates: start: 20090813
  3. CARBOPLATIN [Suspect]
     Indication: NON-SMALL CELL LUNG CANCER
     Dosage: 5 AUC, UNKNOWN
     Route: 065
     Dates: start: 20090813

REACTIONS (7)
  - ADNEXA UTERI MASS [None]
  - DIARRHOEA [None]
  - GENERAL PHYSICAL HEALTH DETERIORATION [None]
  - NEUTROPENIA [None]
  - PETECHIAE [None]
  - SEBORRHOEIC DERMATITIS [None]
  - WHITE BLOOD CELL COUNT DECREASED [None]
